FAERS Safety Report 5761474-7 (Version None)
Quarter: 2008Q2

REPORT INFORMATION
  Report Type: 
  Country: None (occurrence: None)
  Receive Date: 20080606
  Receipt Date: 20080530
  Transmission Date: 20081010
  Serious: Yes (Hospitalization)
  Sender: FDA-Public Use
  Company Number: GB-BOEHRINGER INGELHEIM GMBH, GERMANY-2008-BP-08702RO

PATIENT
  Age: 45 Year
  Sex: Male

DRUGS (12)
  1. AZATHIOPRINE [Suspect]
     Indication: IMMUNOSUPPRESSANT DRUG THERAPY
  2. PREDNISOLONE [Suspect]
     Indication: IMMUNOSUPPRESSANT DRUG THERAPY
  3. PREDNISOLONE [Suspect]
  4. COTRIM [Suspect]
     Indication: PROPHYLAXIS
  5. OMEPRAZOLE [Suspect]
  6. ATORVASTATIN [Suspect]
  7. IRBESARTAN [Suspect]
  8. CALCICHEW [Suspect]
  9. VANCOMYCIN [Concomitant]
     Indication: EVIDENCE BASED TREATMENT
  10. TAZOCIN [Concomitant]
     Indication: EVIDENCE BASED TREATMENT
  11. HYDRATION [Concomitant]
     Indication: EVIDENCE BASED TREATMENT
     Route: 042
  12. MYCOPHENOLATE MOFETIL [Concomitant]
     Indication: IMMUNOSUPPRESSANT DRUG THERAPY

REACTIONS (1)
  - NEPHRITIS INTERSTITIAL [None]
